FAERS Safety Report 5329024-7 (Version None)
Quarter: 2007Q2

REPORT INFORMATION
  Report Type: 
  Country: None (occurrence: None)
  Receive Date: 20070518
  Receipt Date: 20070507
  Transmission Date: 20071010
  Serious: Yes (Other)
  Sender: FDA-Public Use
  Company Number: US-PFIZER INC-2005092314

PATIENT
  Sex: Female

DRUGS (2)
  1. NEURONTIN [Suspect]
     Indication: NEUROPATHY PERIPHERAL
  2. KLONOPIN [Concomitant]
     Indication: ANXIETY

REACTIONS (6)
  - DRUG INEFFECTIVE [None]
  - GUN SHOT WOUND [None]
  - HEMIPARESIS [None]
  - HYPOAESTHESIA [None]
  - PERIPHERAL COLDNESS [None]
  - SUICIDE ATTEMPT [None]
